FAERS Safety Report 5081577-2 (Version None)
Quarter: 2006Q3

REPORT INFORMATION
  Report Type: 
  Country: None (occurrence: None)
  Receive Date: 20060811
  Receipt Date: 20060807
  Transmission Date: 20061208
  Serious: No
  Sender: FDA-Public Use
  Company Number: 007780

PATIENT
  Age: 14 Year
  Sex: Male
  Weight: 59 kg

DRUGS (3)
  1. CLARAVIS [Suspect]
     Dates: start: 20060417, end: 20060505
  2. RISPERDAL [Concomitant]
  3. CONCERTA [Concomitant]

REACTIONS (2)
  - DEPRESSION [None]
  - SELF-INJURIOUS IDEATION [None]
